FAERS Safety Report 17214287 (Version 1)
Quarter: 2020Q1

REPORT INFORMATION
  Report Type: Spontaneous
  Country: US (occurrence: US)
  Receive Date: 20191228
  Receipt Date: 20191228
  Transmission Date: 20200409
  Serious: No
  Sender: FDA-Public Use
  Company Number: None

PATIENT
  Age: 21 Year
  Sex: Male
  Weight: 69.75 kg

DRUGS (1)
  1. RHOFADE [Suspect]
     Active Substance: OXYMETAZOLINE HYDROCHLORIDE
     Indication: ROSACEA
     Dates: start: 20190601, end: 20191225

REACTIONS (4)
  - Psychiatric symptom [None]
  - Skin disorder [None]
  - Abdominal rebound tenderness [None]
  - Rosacea [None]

NARRATIVE: CASE EVENT DATE: 20191225
